FAERS Safety Report 5536726-6 (Version None)
Quarter: 2007Q4

REPORT INFORMATION
  Report Type: 
  Country: None (occurrence: None)
  Receive Date: 20071206
  Receipt Date: 20070504
  Transmission Date: 20080405
  Serious: Yes (Other)
  Sender: FDA-Public Use
  Company Number: US-AMGEN-US141521

PATIENT
  Sex: Female

DRUGS (7)
  1. ENBREL [Suspect]
     Indication: PSORIATIC ARTHROPATHY
     Route: 058
     Dates: start: 20040606, end: 20050511
  2. METHOTREXATE [Concomitant]
     Dates: start: 20031101, end: 20050511
  3. LEXAPRO [Concomitant]
  4. WELLBUTRIN [Concomitant]
     Route: 065
  5. LODINE [Concomitant]
     Route: 065
  6. CLOBETASOL PROPIONATE [Concomitant]
     Route: 065
  7. FOLIC ACID [Concomitant]
     Route: 065

REACTIONS (1)
  - CHRONIC MYELOID LEUKAEMIA [None]
